FAERS Safety Report 20430129 (Version 1)
Quarter: 2022Q1

REPORT INFORMATION
  Report Type: Report from Study
  Country: FR (occurrence: FR)
  Receive Date: 20220204
  Receipt Date: 20220204
  Transmission Date: 20220423
  Serious: Yes (Hospitalization)
  Sender: FDA-Public Use
  Company Number: FR-SERVIER-S20003802

PATIENT

DRUGS (8)
  1. ONCASPAR [Suspect]
     Active Substance: PEGASPARGASE
     Indication: Acute lymphocytic leukaemia
     Dosage: 2100 IU, DAY 4
     Route: 042
     Dates: start: 20180903
  2. DEXAMETHASONE [Suspect]
     Active Substance: DEXAMETHASONE
     Indication: Acute lymphocytic leukaemia
     Dosage: 10 MG, DAY 1 TO DAY 7, DAY 15 TO DAY 21
     Route: 048
     Dates: start: 20180829, end: 20180918
  3. VINCRISTINE [Suspect]
     Active Substance: VINCRISTINE
     Indication: Acute lymphocytic leukaemia
     Dosage: 1.2 MG, DAY 1, DAY 8 AND DAY 15
     Route: 042
     Dates: start: 20180829, end: 20180912
  4. DOXORUBICIN [Suspect]
     Active Substance: DOXORUBICIN
     Indication: Acute lymphocytic leukaemia
     Dosage: 20.8 MG, DAY 1, DAY 8, DAY 15
     Route: 042
     Dates: start: 20180829, end: 20180912
  5. CYTARABINE [Suspect]
     Active Substance: CYTARABINE
     Indication: Acute lymphocytic leukaemia
     Dosage: 30 MG, DAY 4
     Route: 037
     Dates: start: 20180901
  6. HYDROCORTISONE [Suspect]
     Active Substance: HYDROCORTISONE
     Indication: Acute lymphocytic leukaemia
     Dosage: 15 MG, DAY 4
     Route: 037
     Dates: start: 20180901
  7. TN UNSPCEFIED [Concomitant]
     Indication: Constipation
     Dosage: 10 MG, QD
     Route: 048
     Dates: start: 20180905
  8. BACTRIM [Concomitant]
     Active Substance: SULFAMETHOXAZOLE\TRIMETHOPRIM
     Indication: Prophylaxis
     Dosage: 500 MG, 3X A WEEK
     Route: 048
     Dates: start: 20180902

REACTIONS (1)
  - Ecthyma [Recovered/Resolved]

NARRATIVE: CASE EVENT DATE: 20180916
